FAERS Safety Report 5733544-0 (Version None)
Quarter: 2008Q2

REPORT INFORMATION
  Report Type: 
  Country: None (occurrence: None)
  Receive Date: 20080509
  Receipt Date: 20080428
  Transmission Date: 20081010
  Serious: Yes (Other)
  Sender: FDA-Public Use
  Company Number: HQWYE447327JUL04

PATIENT
  Sex: Female

DRUGS (4)
  1. PREMPRO [Suspect]
     Indication: HORMONE REPLACEMENT THERAPY
     Dosage: 0.625/2.5 (FREQUENCY UNSPECIFIED)
     Dates: start: 19961211
  2. PREMPRO [Suspect]
     Dosage: 0.625/5 MG (FREQUENCY UNSPECIFIED)
     Dates: start: 19990210
  3. PROVERA [Suspect]
     Indication: HORMONE REPLACEMENT THERAPY
     Dosage: 5 MG (FREQUENCY UNSPECIFIED)
  4. PREMARIN [Suspect]
     Indication: HORMONE REPLACEMENT THERAPY
     Dosage: 1.25 MG (FREQUENCY UNSPECIFIED)

REACTIONS (1)
  - BREAST CANCER [None]
